FAERS Safety Report 5123784-6 (Version None)
Quarter: 2006Q4

REPORT INFORMATION
  Report Type: 
  Country: None (occurrence: None)
  Receive Date: 20061010
  Receipt Date: 20061002
  Transmission Date: 20070319
  Serious: Yes (Death, Life-Threatening, Hospitalization)
  Sender: FDA-Public Use
  Company Number: PHHO2006CA16505

PATIENT
  Age: 76 Year
  Sex: Female
  Weight: 69.9 kg

DRUGS (8)
  1. AMLODIPINE [Concomitant]
  2. IRBESARTAN [Concomitant]
  3. LEVOTHYROXINE SODIUM [Concomitant]
  4. METFORMIN [Concomitant]
  5. ROSIGLITAZONE [Concomitant]
  6. CYTARABINE [Concomitant]
  7. PREDNISOLONE [Concomitant]
  8. GLEEVEC [Suspect]
     Indication: ACUTE MYELOID LEUKAEMIA
     Dosage: 400 MG, QD
     Route: 048
     Dates: start: 20060922, end: 20060930

REACTIONS (11)
  - ANGIONEUROTIC OEDEMA [None]
  - CARDIO-RESPIRATORY ARREST [None]
  - DYSPHAGIA [None]
  - ELECTROMECHANICAL DISSOCIATION [None]
  - INTUBATION COMPLICATION [None]
  - ORAL DISCHARGE [None]
  - RESUSCITATION [None]
  - SWELLING FACE [None]
  - SWOLLEN TONGUE [None]
  - THROAT IRRITATION [None]
  - TONGUE COATED [None]
